FAERS Safety Report 9514633 (Version 1)
Quarter: 2013Q1

REPORT INFORMATION
  Report Type: Spontaneous
  Country: US (occurrence: None)
  Receive Date: 20130305
  Receipt Date: 20130305
  Transmission Date: 20140127
  Serious: Yes (Hospitalization)
  Sender: FDA-Public Use
  Company Number: 163-21880-12112467

PATIENT
  Age: 70 Year
  Sex: Female
  Weight: 76.3 kg

DRUGS (15)
  1. REVLIMID [Suspect]
     Indication: PLASMA CELL MYELOMA
     Route: 048
     Dates: start: 20111005
  2. ALLOPURINOL (ALLOPURINOL) [Concomitant]
  3. FLEXERIL (CYCLOBENZAPRINE HYDROCHLORIDE) [Concomitant]
  4. LIDODERM (LIDOCAINE) [Concomitant]
  5. MAGIC MOUTHWASH (OTHER AGENTS FOR LOCAL ORAL TREATMENT) [Concomitant]
  6. MAGNESIUM OXIDE (MAGNESIUM OXIDE) [Concomitant]
  7. OXYCODONE HCL (OXYCODONE HYDROCHLORIDE) [Concomitant]
  8. OXYCONTIN (OXYCODONE HYDROCHLORIDE) [Concomitant]
  9. PRILOSEC [Concomitant]
  10. SYNTHROID (LEVOTHYROXINE SODIUM) [Concomitant]
  11. VENLAFAXINE HCL (VENLAFAXINE HYDROCHLORIDE) [Concomitant]
  12. XANAX (ALPRAZOLAM) [Concomitant]
  13. ZOFRAN (ONDANSETRON HYDROCHLORIDE) [Concomitant]
  14. VITAMIN B12 (CYANOCOBALAMIN) [Concomitant]
  15. FLONASE (FLUTICASONE PROPIONATE) [Suspect]

REACTIONS (1)
  - Cerebrovascular accident [None]
